FAERS Safety Report 10552436 (Version 1)
Quarter: 2014Q4

REPORT INFORMATION
  Report Type: Spontaneous
  Country: US (occurrence: None)
  Receive Date: 20141023
  Receipt Date: 20141023
  Transmission Date: 20150529
  Serious: No
  Sender: FDA-Public Use
  Company Number: AP356-01216-SPO-US

PATIENT
  Age: 48 Year
  Sex: Female
  Weight: 91.8 kg

DRUGS (1)
  1. BELVIQ [Suspect]
     Active Substance: LORCASERIN HYDROCHLORIDE
     Indication: WEIGHT DECREASED
     Route: 048
     Dates: start: 201406, end: 2014

REACTIONS (2)
  - Urinary retention [None]
  - Abdominal pain [None]

NARRATIVE: CASE EVENT DATE: 2014
